FAERS Safety Report 6400540-X (Version None)
Quarter: 2009Q4

REPORT INFORMATION
  Report Type: 
  Country: None (occurrence: None)
  Receive Date: 20091014
  Receipt Date: 20091006
  Transmission Date: 20100525
  Serious: Yes (Other)
  Sender: FDA-Public Use
  Company Number: TW-JNJCH-2009005167

PATIENT
  Age: 31 Year
  Sex: Female

DRUGS (1)
  1. REGAINE 2% [Suspect]
     Indication: ALOPECIA
     Dosage: TEXT:20 MG, TWICE DAILY
     Route: 061
     Dates: start: 20090101, end: 20090901

REACTIONS (4)
  - APPLICATION SITE DERMATITIS [None]
  - BREAST CYST [None]
  - DANDRUFF [None]
  - SKIN DISORDER [None]
